FAERS Safety Report 4702775-0 (Version None)
Quarter: 2005Q2

REPORT INFORMATION
  Report Type: 
  Country: None (occurrence: None)
  Receive Date: 20050628
  Receipt Date: 20050628
  Transmission Date: 20051028
  Serious: No
  Sender: FDA-Public Use
  Company Number: None

PATIENT
  Sex: Female

DRUGS (1)
  1. ORTHO TRI-CYCLEN [Suspect]
     Dates: start: 20030601, end: 20030601

REACTIONS (4)
  - HAEMORRHAGE [None]
  - INFERTILITY FEMALE [None]
  - MENORRHAGIA [None]
  - OVARIAN DISORDER [None]
